FAERS Safety Report 26060382 (Version 1)
Quarter: 2025Q4

REPORT INFORMATION
  Report Type: Spontaneous
  Country: US (occurrence: US)
  Receive Date: 20251118
  Receipt Date: 20251118
  Transmission Date: 20260117
  Serious: No
  Sender: SANOFI AVENTIS
  Company Number: US-SA-2025SA336138

PATIENT
  Age: 54 Year
  Sex: Female

DRUGS (5)
  1. DUPIXENT [Suspect]
     Active Substance: DUPILUMAB
     Indication: Asthma
     Dosage: 600 MG, 1X
     Route: 058
     Dates: start: 202307, end: 202307
  2. DUPIXENT [Suspect]
     Active Substance: DUPILUMAB
     Dosage: 300 MG, QOW
     Route: 058
     Dates: start: 2023
  3. INFLUENZA VIRUS VACCINE [Suspect]
     Active Substance: INFLUENZA VIRUS VACCINE
     Indication: Immunisation
     Route: 065
     Dates: start: 20250611
  4. COVID-19 VACCINE NOS [Suspect]
     Active Substance: COVID-19 VACCINE
     Indication: Immunisation
     Dosage: UNK
     Route: 065
     Dates: start: 20250611
  5. PNEUMOCOCCAL VACCINE NOS [Suspect]
     Active Substance: PNEUMOCOCCAL VACCINE
     Indication: Immunisation
     Dosage: UNK
     Route: 065
     Dates: start: 20250611

REACTIONS (2)
  - Pain [Recovering/Resolving]
  - Pyrexia [Recovering/Resolving]

NARRATIVE: CASE EVENT DATE: 20251106
